FAERS Safety Report 4662490-9 (Version None)
Quarter: 2005Q2

REPORT INFORMATION
  Report Type: 
  Country: None (occurrence: None)
  Receive Date: 20050512
  Receipt Date: 20050510
  Transmission Date: 20051028
  Serious: Yes (Other)
  Sender: FDA-Public Use
  Company Number: 212681

PATIENT
  Age: 38 Year
  Sex: Female

DRUGS (14)
  1. HERCEPTIN [Suspect]
     Indication: BREAST CANCER METASTATIC
     Dosage: 102 MG, 1/WEEK, INTRAVENOUS
     Route: 042
     Dates: start: 20020704
  2. GEMZAR [Suspect]
     Indication: BREAST CANCER METASTATIC
     Dosage: INTRAVENOUS
     Route: 042
     Dates: start: 20040901
  3. ZOLADEX [Concomitant]
  4. NOLVADEX [Concomitant]
  5. TAXOTERE [Concomitant]
  6. PIRARUBICIN (PIRARUBICIN) [Concomitant]
  7. XELODA [Concomitant]
  8. DUROTEP (FENTANYL CITRATE) [Concomitant]
  9. NAVELBINE [Concomitant]
  10. PASSIVE IMMUNOTHERAPY (PASSIVE IMMUNOTHERAPY NOS) [Concomitant]
  11. RADIOTHERAPY (RADIATION THERAPY) [Concomitant]
  12. TRANQULIZERS (TRANQUILIZER NOS) [Concomitant]
  13. PNASPORIN (MEPIVACAINE HYDROCHLORIDE, CEFOTIAM HYDROCHLORIDE) [Concomitant]
  14. PENTICILLIN (PIPERACILLIN SODIUM) [Concomitant]

REACTIONS (11)
  - BRONCHITIS [None]
  - ENURESIS [None]
  - FASCIITIS [None]
  - JAUNDICE [None]
  - MENTAL DISORDER [None]
  - MYOSITIS [None]
  - PAIN IN EXTREMITY [None]
  - PNEUMONIA [None]
  - TONSILLITIS [None]
  - TREMOR [None]
  - URINARY RETENTION [None]
